FAERS Safety Report 4379254-6 (Version None)
Quarter: 2004Q2

REPORT INFORMATION
  Report Type: 
  Country: None (occurrence: None)
  Receive Date: 20040610
  Receipt Date: 20040601
  Transmission Date: 20050107
  Serious: Yes (Other)
  Sender: FDA-Public Use
  Company Number: 24112

PATIENT
  Age: 20 Month

DRUGS (1)
  1. ALDARA [Suspect]
     Indication: SKIN PAPILLOMA
     Dosage: (0.33 SACHET, 5 IN 1
     Dates: start: 20040114, end: 20040224

REACTIONS (2)
  - APPLICATION SITE INFLAMMATION [None]
  - AUTOIMMUNE THYROIDITIS [None]
